FAERS Safety Report 13277607 (Version 2)
Quarter: 2017Q2

REPORT INFORMATION
  Report Type: Spontaneous
  Country: IN (occurrence: IN)
  Receive Date: 20170228
  Receipt Date: 20170411
  Transmission Date: 20170830
  Serious: Yes (Disabling)
  Sender: FDA-Public Use
  Company Number: IN-AVADEL PHARMACEUTICALS (USA), INC.-2017AVA00024

PATIENT
  Age: 79 Year
  Sex: Male

DRUGS (2)
  1. RABEPRAZOLE SODIUM. [Suspect]
     Active Substance: RABEPRAZOLE SODIUM
     Indication: DYSPEPSIA
     Dosage: UNK
     Route: 048
  2. LEVOSULPIRIDE [Suspect]
     Active Substance: LEVOSULPIRIDE
     Indication: DYSPEPSIA
     Dosage: UNK
     Route: 048

REACTIONS (1)
  - Parkinsonism [Recovering/Resolving]
